FAERS Safety Report 19954621 (Version 1)
Quarter: 2021Q4

REPORT INFORMATION
  Report Type: Spontaneous
  Country: US (occurrence: US)
  Receive Date: 20211012
  Receipt Date: 20211012
  Transmission Date: 20220304
  Serious: Yes (Hospitalization)
  Sender: FDA-Public Use
  Company Number: None

PATIENT
  Age: 71 Year
  Sex: Male

DRUGS (2)
  1. EPCLUSA [Suspect]
     Active Substance: SOFOSBUVIR\VELPATASVIR
     Indication: Hepatitis viral
     Dosage: ?          OTHER DOSE:400-100MG;
     Route: 048
     Dates: start: 20210624
  2. EPCLUSA [Suspect]
     Active Substance: SOFOSBUVIR\VELPATASVIR
     Indication: Hepatitis C

REACTIONS (4)
  - Lung neoplasm malignant [None]
  - Hepatic cancer [None]
  - Cerebrovascular accident [None]
  - Dysphagia [None]

NARRATIVE: CASE EVENT DATE: 20210801
